FAERS Safety Report 8257433-5 (Version None)
Quarter: 2012Q2

REPORT INFORMATION
  Report Type: 
  Country: None (occurrence: None)
  Receive Date: 20120403
  Receipt Date: 20120325
  Transmission Date: 20120825
  Serious: Yes (Death, Life-Threatening, Hospitalization)
  Sender: FDA-Public Use
  Company Number: JP-AMGEN-JPNCT2011011384

PATIENT
  Age: 83 Year
  Sex: Male
  Weight: 74 kg

DRUGS (7)
  1. ASPIRIN [Concomitant]
     Indication: ANGINA PECTORIS
     Dosage: 100 MG, QD
     Route: 048
     Dates: end: 20110121
  2. FAMOTIDINE [Concomitant]
     Indication: GASTRITIS
     Route: 048
     Dates: end: 20110118
  3. ZETIA [Concomitant]
     Indication: HYPERLIPIDAEMIA
     Route: 048
     Dates: end: 20110121
  4. MAGMITT [Concomitant]
     Indication: CONSTIPATION
     Route: 048
     Dates: end: 20110118
  5. PANITUMUMAB [Suspect]
     Indication: COLORECTAL CANCER
     Dosage: 440 MG, Q2WK
     Route: 041
     Dates: start: 20101208, end: 20110105
  6. TOPOTECAN [Suspect]
     Indication: COLORECTAL CANCER
     Route: 041
     Dates: start: 20101208, end: 20110119
  7. DILTIAZEM HCL [Concomitant]
     Indication: ANGINA PECTORIS
     Dosage: 200 MG, BID
     Route: 048
     Dates: end: 20110121

REACTIONS (4)
  - DIARRHOEA [None]
  - RASH [None]
  - DECREASED APPETITE [None]
  - INTERSTITIAL LUNG DISEASE [None]
